FAERS Safety Report 24700159 (Version 1)
Quarter: 2024Q4

REPORT INFORMATION
  Report Type: Spontaneous
  Country: FR (occurrence: FR)
  Receive Date: 20241205
  Receipt Date: 20241205
  Transmission Date: 20250115
  Serious: Yes (Other)
  Sender: AUROBINDO
  Company Number: FR-AFSSAPS-TS2024001341

PATIENT
  Age: 69 Year
  Sex: Female
  Weight: 62 kg

DRUGS (5)
  1. DOXORUBICIN [Suspect]
     Active Substance: DOXORUBICIN
     Indication: Chemotherapy
     Dosage: 98 MILLIGRAM (C3 J1)
     Route: 042
     Dates: start: 20240624, end: 20240805
  2. CARBOPLATIN [Suspect]
     Active Substance: CARBOPLATIN
     Indication: Chemotherapy
     Dosage: 150 MILLIGRAM, EVERY WEEK
     Route: 042
     Dates: start: 20240827, end: 20241001
  3. KEYTRUDA [Suspect]
     Active Substance: PEMBROLIZUMAB
     Indication: Targeted cancer therapy
     Dosage: UNK (C3 J1)
     Route: 042
     Dates: start: 20240824
  4. TAXOL [Suspect]
     Active Substance: PACLITAXEL
     Indication: Chemotherapy
     Dosage: 132 MILLIGRAM, EVERY WEEK (C3 J15)
     Route: 065
     Dates: start: 20240827
  5. CYCLOPHOSPHAMIDE [Suspect]
     Active Substance: CYCLOPHOSPHAMIDE
     Indication: Chemotherapy
     Dosage: 1 GRAM, EVERY WEEK (C3 J15)
     Route: 042
     Dates: start: 20240624, end: 20240819

REACTIONS (1)
  - Left ventricular failure [Not Recovered/Not Resolved]

NARRATIVE: CASE EVENT DATE: 20241003
